FAERS Safety Report 8761518 (Version 6)
Quarter: 2013Q3

REPORT INFORMATION
  Report Type: Spontaneous
  Country: JP (occurrence: JP)
  Receive Date: 20120829
  Receipt Date: 20130709
  Transmission Date: 20140515
  Serious: Yes (Life-Threatening, Hospitalization, Other)
  Sender: FDA-Public Use
  Company Number: JP-AMGEN-JPNSP2012054391

PATIENT
  Age: 71 Year
  Sex: Male
  Weight: 55 kg

DRUGS (11)
  1. ENBREL [Suspect]
     Indication: RHEUMATOID ARTHRITIS
     Dosage: 25 MG, 2X/WEEK
     Route: 058
     Dates: start: 20070111, end: 20090526
  2. ENBREL [Suspect]
     Dosage: 25 MG, WEEKLY
     Route: 058
     Dates: start: 20090623, end: 20120824
  3. RHEUMATREX /00113802/ [Suspect]
     Indication: RHEUMATOID ARTHRITIS
     Dosage: 4 MG, WEEKLY
     Route: 048
     Dates: start: 200510
  4. RHEUMATREX /00113802/ [Suspect]
     Dosage: 6 MG, WEEKLY
     Route: 048
     Dates: start: 200511
  5. RHEUMATREX /00113802/ [Suspect]
     Dosage: 8 MG, WEEKLY
     Route: 048
     Dates: start: 200604
  6. RHEUMATREX /00113802/ [Suspect]
     Dosage: 2 MG, 4 TIMES WEEKLY
     Route: 048
     Dates: start: 20070111, end: 20070207
  7. RHEUMATREX /00113802/ [Suspect]
     Dosage: 2 MG, 3 TIMES WEEKLY
     Route: 048
     Dates: start: 20070208, end: 20070304
  8. RHEUMATREX /00113802/ [Suspect]
     Dosage: 2 MG, WEEKLY
     Route: 048
     Dates: start: 20070305, end: 20120824
  9. PREDNISOLONE [Concomitant]
     Indication: RHEUMATOID ARTHRITIS
     Dosage: 5 MG, UNK
     Route: 048
     Dates: start: 200302
  10. PREDNISOLONE [Concomitant]
     Dosage: 10 MG, UNK
     Route: 048
     Dates: start: 200508
  11. PREDNISOLONE [Concomitant]
     Dosage: 5 MG, 1X/DAY
     Route: 048
     Dates: start: 20070111, end: 20120824

REACTIONS (1)
  - Pneumonia [Not Recovered/Not Resolved]
